FAERS Safety Report 13767556 (Version 2)
Quarter: 2017Q3

REPORT INFORMATION
  Report Type: Report from Study
  Country: AU (occurrence: AU)
  Receive Date: 20170719
  Receipt Date: 20170801
  Transmission Date: 20171127
  Serious: Yes (Hospitalization, Other)
  Sender: FDA-Public Use
  Company Number: AU-REGENERON PHARMACEUTICALS, INC.-2016-25296

PATIENT

DRUGS (1)
  1. EYLEA [Suspect]
     Active Substance: AFLIBERCEPT
     Indication: RETINAL VEIN OCCLUSION
     Dosage: EVERY 8 MONTHS
     Dates: start: 20150701

REACTIONS (4)
  - Glaucoma [Unknown]
  - Malignant neoplasm of eyelid [Unknown]
  - Blindness [Unknown]
  - Glare [Unknown]

NARRATIVE: CASE EVENT DATE: 20161208
